FAERS Safety Report 5531440-5 (Version None)
Quarter: 2007Q4

REPORT INFORMATION
  Report Type: 
  Country: None (occurrence: None)
  Receive Date: 20071203
  Receipt Date: 20071120
  Transmission Date: 20080405
  Serious: Yes (Other)
  Sender: FDA-Public Use
  Company Number: AT-JNJFOC-20071108836

PATIENT
  Age: 33 Year

DRUGS (6)
  1. TRAMADOL HCL [Suspect]
     Indication: DRUG USE FOR UNKNOWN INDICATION
     Route: 065
  2. DOTHIEPIN HYDROCHLORIDE [Suspect]
     Indication: DRUG USE FOR UNKNOWN INDICATION
     Route: 065
  3. ALPRAZOLAM [Concomitant]
  4. DIAZEPAM [Concomitant]
  5. BROMAZEPAM [Concomitant]
  6. ALCOHOL [Concomitant]

REACTIONS (1)
  - PLEUROTHOTONUS [None]
